FAERS Safety Report 5275367-5 (Version None)
Quarter: 2007Q1

REPORT INFORMATION
  Report Type: 
  Country: None (occurrence: None)
  Receive Date: 20070322
  Receipt Date: 20070322
  Transmission Date: 20070707
  Serious: Yes (Hospitalization)
  Sender: FDA-Public Use
  Company Number: None

PATIENT
  Age: 90 Year
  Sex: Female
  Weight: 41 kg

DRUGS (1)
  1. DIGOXIN [Suspect]
     Indication: CORONARY ARTERY DISEASE
     Dosage: 0.125 MG DAILY ORAL
     Route: 048

REACTIONS (4)
  - BALANCE DISORDER [None]
  - BLOOD PRESSURE DECREASED [None]
  - FATIGUE [None]
  - MALAISE [None]
